FAERS Safety Report 26044002 (Version 1)
Quarter: 2025Q4

REPORT INFORMATION
  Report Type: Spontaneous
  Country: US (occurrence: US)
  Receive Date: 20251114
  Receipt Date: 20251114
  Transmission Date: 20260117
  Serious: Yes (Other)
  Sender: GLAXOSMITHKLINE
  Company Number: US-GSK-US2025GSK146785

PATIENT
  Age: 67 Year
  Sex: Female

DRUGS (1)
  1. VALACYCLOVIR [Suspect]
     Active Substance: VALACYCLOVIR HYDROCHLORIDE
     Indication: Mouth ulceration
     Dosage: UNK USE SINCE 42 YEARS

REACTIONS (3)
  - Leukopenia [Unknown]
  - Neutropenia [Recovering/Resolving]
  - Pneumonia bacterial [Unknown]
